FAERS Safety Report 14731366 (Version 1)
Quarter: 2018Q2

REPORT INFORMATION
  Report Type: Report from Study
  Country: US (occurrence: US)
  Receive Date: 20180407
  Receipt Date: 20180407
  Transmission Date: 20180711
  Serious: Yes (Other)
  Sender: FDA-Public Use
  Company Number: US-ROCHE-2101165

PATIENT
  Sex: Female
  Weight: 72.64 kg

DRUGS (1)
  1. HERCEPTIN [Suspect]
     Active Substance: TRASTUZUMAB
     Indication: BREAST CANCER METASTATIC
     Dosage: SECOND LINE THERAPY
     Route: 065
     Dates: start: 20171031, end: 20171120

REACTIONS (1)
  - Deep vein thrombosis [Unknown]
